FAERS Safety Report 19086244 (Version 1)
Quarter: 2021Q2

REPORT INFORMATION
  Report Type: Report from Study
  Country: IN (occurrence: IN)
  Receive Date: 20210402
  Receipt Date: 20210402
  Transmission Date: 20210717
  Serious: Yes (Other)
  Sender: FDA-Public Use
  Company Number: NVSC2021IN071267

PATIENT
  Age: 44 Year
  Sex: Male

DRUGS (1)
  1. SPEXIB [Suspect]
     Active Substance: CERITINIB
     Indication: LUNG NEOPLASM MALIGNANT
     Dosage: 600 MG, QD
     Route: 065
     Dates: start: 20210113, end: 20210221

REACTIONS (2)
  - Incorrect dose administered [Unknown]
  - Hepatic infection [Unknown]

NARRATIVE: CASE EVENT DATE: 20210221
